FAERS Safety Report 18223995 (Version 7)
Quarter: 2021Q2

REPORT INFORMATION
  Report Type: Report from Study
  Country: US (occurrence: US)
  Receive Date: 20200902
  Receipt Date: 20210527
  Transmission Date: 20210717
  Serious: Yes (Hospitalization, Other)
  Sender: FDA-Public Use
  Company Number: US-B.I. PHARMACEUTICALS,INC./RIDGEFIELD-2020-MR-039153

PATIENT
  Age: 77 Year
  Sex: Male

DRUGS (4)
  1. METFORMIN [Concomitant]
     Active Substance: METFORMIN HYDROCHLORIDE
     Indication: PRODUCT USED FOR UNKNOWN INDICATION
  2. OFEV [Suspect]
     Active Substance: NINTEDANIB
     Indication: INTERSTITIAL LUNG DISEASE
     Route: 048
     Dates: start: 20200721
  3. OFEV [Suspect]
     Active Substance: NINTEDANIB
     Route: 048
     Dates: start: 20200826
  4. OFEV [Suspect]
     Active Substance: NINTEDANIB
     Indication: IDIOPATHIC PULMONARY FIBROSIS
     Route: 048
     Dates: start: 20200722

REACTIONS (22)
  - Skin cancer [Unknown]
  - Flatulence [Unknown]
  - Abdominal pain upper [Unknown]
  - Blood glucose fluctuation [Unknown]
  - Abdominal discomfort [Not Recovered/Not Resolved]
  - Eructation [Recovering/Resolving]
  - Hepatic enzyme increased [Not Recovered/Not Resolved]
  - Arthralgia [Recovered/Resolved]
  - Diarrhoea [Unknown]
  - Back pain [Not Recovered/Not Resolved]
  - Diabetes mellitus [Not Recovered/Not Resolved]
  - Epistaxis [Recovered/Resolved]
  - Blood glucose increased [Not Recovered/Not Resolved]
  - Abdominal pain [Unknown]
  - Sleep disorder [Unknown]
  - Abdominal pain upper [Recovered/Resolved]
  - Nail infection [Unknown]
  - Flatulence [Recovering/Resolving]
  - Constipation [Unknown]
  - Gastric disorder [Unknown]
  - Epistaxis [Recovered/Resolved]
  - Feeding disorder [Unknown]

NARRATIVE: CASE EVENT DATE: 2020
